FAERS Safety Report 21484303 (Version 1)
Quarter: 2022Q4

REPORT INFORMATION
  Report Type: Spontaneous
  Country: US (occurrence: US)
  Receive Date: 20221020
  Receipt Date: 20221020
  Transmission Date: 20230113
  Serious: Yes (Hospitalization, Other)
  Sender: FDA-Public Use
  Company Number: US-REGENERON PHARMACEUTICALS, INC.-2022-134873

PATIENT
  Sex: Female

DRUGS (1)
  1. EYLEA [Suspect]
     Active Substance: AFLIBERCEPT
     Indication: Macular degeneration
     Dosage: UNK, Q6W; FORMULATION: UNKNOWN

REACTIONS (4)
  - Fall [Unknown]
  - Hip fracture [Unknown]
  - Confusional state [Unknown]
  - Micturition urgency [Unknown]

NARRATIVE: CASE EVENT DATE: 20220101
